FAERS Safety Report 7274894-9 (Version None)
Quarter: 2011Q1

REPORT INFORMATION
  Report Type: 
  Country: None (occurrence: None)
  Receive Date: 20110204
  Receipt Date: 20110125
  Transmission Date: 20110831
  Serious: Yes (Other)
  Sender: FDA-Public Use
  Company Number: GB-SANOFI-AVENTIS-2011SA005365

PATIENT
  Age: 79 Year
  Sex: Female
  Weight: 83 kg

DRUGS (6)
  1. MULTAQ [Suspect]
     Route: 048
     Dates: start: 20101101
  2. WARFARIN SODIUM [Concomitant]
  3. LANSOPRAZOLE [Concomitant]
  4. GLICLAZIDE [Concomitant]
  5. SIMVASTATIN [Concomitant]
  6. THYROXIN [Concomitant]

REACTIONS (1)
  - ATRIAL FLUTTER [None]
